FAERS Safety Report 5363624-3 (Version None)
Quarter: 2007Q2

REPORT INFORMATION
  Report Type: 
  Country: None (occurrence: None)
  Receive Date: 20070618
  Receipt Date: 20070618
  Transmission Date: 20071010
  Serious: Yes (Hospitalization)
  Sender: FDA-Public Use
  Company Number: None

PATIENT
  Sex: Female
  Weight: 60.81 kg

DRUGS (4)
  1. TOPOTECAN [Suspect]
     Dosage: 15.9 MG
  2. COUMADIN [Concomitant]
  3. MS CONTIN [Concomitant]
  4. PERCOCET [Concomitant]

REACTIONS (1)
  - PYELONEPHRITIS [None]
